FAERS Safety Report 12901231 (Version 2)
Quarter: 2017Q1

REPORT INFORMATION
  Report Type: Report from Study
  Country: None (occurrence: CA)
  Receive Date: 20161101
  Receipt Date: 20170105
  Transmission Date: 20170428
  Serious: Yes (Death, Hospitalization)
  Sender: FDA-Public Use
  Company Number: CA-ABBVIE-16P-028-1766903-00

PATIENT
  Sex: Male
  Weight: 95 kg

DRUGS (1)
  1. HUMIRA [Suspect]
     Active Substance: ADALIMUMAB
     Indication: RHEUMATOID ARTHRITIS
     Route: 058
     Dates: start: 20160203, end: 201608

REACTIONS (3)
  - Respiratory failure [Fatal]
  - Dyspnoea [Fatal]
  - Lung infection [Fatal]

NARRATIVE: CASE EVENT DATE: 2016
